FAERS Safety Report 6086251-1 (Version None)
Quarter: 2009Q1

REPORT INFORMATION
  Report Type: 
  Country: None (occurrence: None)
  Receive Date: 20090220
  Receipt Date: 20080303
  Transmission Date: 20090719
  Serious: No
  Sender: FDA-Public Use
  Company Number: US-ASTRAZENECA-2008UW04381

PATIENT
  Sex: Female

DRUGS (1)
  1. PLENDIL [Suspect]
     Route: 048

REACTIONS (2)
  - AGEUSIA [None]
  - BALANCE DISORDER [None]
